FAERS Safety Report 5365554-X (Version None)
Quarter: 2007Q2

REPORT INFORMATION
  Report Type: 
  Country: None (occurrence: None)
  Receive Date: 20070621
  Receipt Date: 20070612
  Transmission Date: 20071010
  Serious: Yes (Death, Hospitalization)
  Sender: FDA-Public Use
  Company Number: B0475780A

PATIENT
  Age: 54 Year
  Sex: Male

DRUGS (4)
  1. CLAVENTIN [Suspect]
     Indication: URINARY TRACT INFECTION
     Dosage: 5G THREE TIMES PER DAY
     Route: 042
     Dates: start: 20070111, end: 20070116
  2. ERLOTINIB [Suspect]
     Dosage: 100MG PER DAY
     Route: 048
     Dates: start: 20060101, end: 20060118
  3. OMEPRAZOLE [Suspect]
     Dosage: 50MG PER DAY
     Route: 042
     Dates: start: 20070105, end: 20070117
  4. OFLOCET [Concomitant]
     Indication: URINARY TRACT INFECTION
     Dosage: 200MG TWICE PER DAY
     Route: 042
     Dates: start: 20070111, end: 20070115

REACTIONS (7)
  - ACNE [None]
  - DEATH [None]
  - PURPURA [None]
  - SKIN DISORDER [None]
  - SKIN FRAGILITY [None]
  - SKIN LESION [None]
  - TOXIC SKIN ERUPTION [None]
